FAERS Safety Report 24335695 (Version 1)
Quarter: 2024Q3

REPORT INFORMATION
  Report Type: Spontaneous
  Country: EG (occurrence: EG)
  Receive Date: 20240919
  Receipt Date: 20240919
  Transmission Date: 20241017
  Serious: Yes (Death, Other)
  Sender: NOVO NORDISK
  Company Number: EG-NOVOPROD-1280701

PATIENT

DRUGS (2)
  1. INSULIN HUMAN [Suspect]
     Active Substance: INSULIN HUMAN
     Indication: Diabetes mellitus
     Dosage: 55 IU, QD (30U AT MORNING AND 25U AT NIGHT)
     Route: 064
  2. MIXTARD HUMAN 70/30 [Suspect]
     Active Substance: INSULIN HUMAN
     Indication: Diabetes mellitus
     Dosage: 55 IU, QD (30U AT MORNING AND 25U AT NIGHT)
     Route: 064

REACTIONS (3)
  - Death neonatal [Fatal]
  - Premature baby [Recovered/Resolved]
  - Foetal exposure during pregnancy [Recovered/Resolved]
